FAERS Safety Report 15312465 (Version 1)
Quarter: 2018Q3

REPORT INFORMATION
  Report Type: Spontaneous
  Country: US (occurrence: US)
  Receive Date: 20180814
  Receipt Date: 20180814
  Transmission Date: 20181010
  Serious: No
  Sender: FDA-Public Use
  Company Number: None

PATIENT
  Sex: Female

DRUGS (3)
  1. VERZENIO [Suspect]
     Active Substance: ABEMACICLIB
     Indication: METASTASES TO LYMPH NODES
  2. VERZENIO [Suspect]
     Active Substance: ABEMACICLIB
     Indication: METASTASES TO BONE
  3. VERZENIO [Suspect]
     Active Substance: ABEMACICLIB
     Indication: BREAST CANCER FEMALE
     Route: 048
     Dates: start: 20180608

REACTIONS (2)
  - Laboratory test abnormal [None]
  - Renal disorder [None]
